FAERS Safety Report 4600027-0 (Version None)
Quarter: 2005Q1

REPORT INFORMATION
  Report Type: 
  Country: None (occurrence: None)
  Receive Date: 20050307
  Receipt Date: 20050222
  Transmission Date: 20050727
  Serious: Yes (Other)
  Sender: FDA-Public Use
  Company Number: US-JNJFOC-20050206130

PATIENT
  Age: 70 Year
  Sex: Female

DRUGS (7)
  1. PARAFON FORTE [Suspect]
     Indication: DRUG USE FOR UNKNOWN INDICATION
     Route: 049
  2. PRAVACHOL [Concomitant]
  3. AMBIEN [Concomitant]
     Indication: INSOMNIA
  4. BERAMOL [Concomitant]
  5. PRED FORTE [Concomitant]
  6. ZESTRIL [Concomitant]
  7. CHLORPROPAMIDE [Concomitant]

REACTIONS (2)
  - CONDITION AGGRAVATED [None]
  - GLAUCOMA [None]
